FAERS Safety Report 8983206 (Version 1)
Quarter: 2012Q4

REPORT INFORMATION
  Report Type: 
  Country: US (occurrence: US)
  Receive Date: 20121224
  Receipt Date: 20121224
  Transmission Date: 20130627
  Serious: Yes (Death)
  Sender: FDA-Public Use
  Company Number: PHEH2012US025125

PATIENT
  Age: 43 Year
  Sex: Female

DRUGS (1)
  1. MYFORTIC [Suspect]
     Indication: LIVER TRANSPLANT
     Dosage: UNK, BID
     Route: 048
     Dates: start: 20110224

REACTIONS (1)
  - Death [Fatal]
